FAERS Safety Report 19273341 (Version 1)
Quarter: 2021Q2

REPORT INFORMATION
  Report Type: Report from Study
  Country: None (occurrence: US)
  Receive Date: 20210518
  Receipt Date: 20210518
  Transmission Date: 20210717
  Serious: Yes (Other)
  Sender: FDA-Public Use
  Company Number: US-ABBVIE-21K-163-3902444-00

PATIENT
  Sex: Male

DRUGS (11)
  1. VENCLEXTA [Suspect]
     Active Substance: VENETOCLAX
     Dosage: 100MG ? TAKE 8 TABS BY MOUTH DAYS 22?28
     Route: 048
  2. VENCLEXTA [Suspect]
     Active Substance: VENETOCLAX
     Indication: WALDENSTROM^S MACROGLOBULINAEMIA
     Dosage: 100MG ? TAKE 2 TABS BY MOUTH DAYS 1?7
     Route: 048
  3. ACYCLOVIR. [Concomitant]
     Active Substance: ACYCLOVIR
     Indication: PRODUCT USED FOR UNKNOWN INDICATION
  4. RITUXAN [Suspect]
     Active Substance: RITUXIMAB
     Indication: CYSTIC FIBROSIS
     Dosage: VIAL /INFUSE 630MG INTRAVENOUSLY WEEKLY FOR 4 DOSES WITH
     Route: 042
  5. VENCLEXTA [Suspect]
     Active Substance: VENETOCLAX
     Indication: AMYLOIDOSIS
     Dosage: 100MG ? TAKE 4 TABS BY MOUTH DAYS 8?14
     Route: 048
  6. VENCLEXTA [Suspect]
     Active Substance: VENETOCLAX
     Indication: CYSTIC FIBROSIS
     Dosage: 100MG ? TAKE 6 TABS BY MOUTH DAYS 15?21
     Route: 048
  7. RITUXAN [Suspect]
     Active Substance: RITUXIMAB
     Indication: B-CELL LYMPHOMA
     Route: 065
     Dates: start: 20190131
  8. RITUXAN [Suspect]
     Active Substance: RITUXIMAB
     Indication: WALDENSTROM^S MACROGLOBULINAEMIA
     Route: 065
     Dates: start: 20190117, end: 201901
  9. RITUXAN [Suspect]
     Active Substance: RITUXIMAB
     Indication: AMYLOIDOSIS
     Dosage: 500 MG VIAL
     Route: 065
     Dates: start: 20190131
  10. TRANEXAMIC ACID. [Concomitant]
     Active Substance: TRANEXAMIC ACID
     Indication: PRODUCT USED FOR UNKNOWN INDICATION
  11. RITUXAN [Suspect]
     Active Substance: RITUXIMAB
     Indication: PRIMARY AMYLOIDOSIS
     Route: 065

REACTIONS (2)
  - Cataract [Unknown]
  - Off label use [Unknown]
